FAERS Safety Report 7880563-4 (Version None)
Quarter: 2011Q4

REPORT INFORMATION
  Report Type: 
  Country: None (occurrence: None)
  Receive Date: 20111101
  Receipt Date: 20100706
  Transmission Date: 20120403
  Serious: No
  Sender: FDA-Public Use
  Company Number: US-BAYER-201027263NA

PATIENT
  Age: 46 Year
  Sex: Male

DRUGS (2)
  1. LEVITRA [Suspect]
  2. LOSARTAN POTASSIUM [Concomitant]
     Indication: HYPERTENSION
     Dosage: 20 MG, UNK
     Route: 048

REACTIONS (1)
  - ERECTILE DYSFUNCTION [None]
